FAERS Safety Report 6525430-3 (Version None)
Quarter: 2010Q1

REPORT INFORMATION
  Report Type: 
  Country: None (occurrence: None)
  Receive Date: 20100104
  Receipt Date: 20091224
  Transmission Date: 20100710
  Serious: Yes (Life-Threatening, Hospitalization)
  Sender: FDA-Public Use
  Company Number: FR-SANOFI-AVENTIS-2009SA010885

PATIENT
  Age: 84 Year
  Sex: Female

DRUGS (5)
  1. PLAQUENIL [Suspect]
     Route: 048
     Dates: start: 20090925, end: 20091104
  2. LAMPRENE [Suspect]
     Indication: PYODERMA GANGRENOSUM
     Route: 048
     Dates: start: 20090918, end: 20091104
  3. FURADANTIN [Concomitant]
     Route: 048
     Dates: start: 20091026, end: 20091102
  4. TARDYFERON /GFR/ [Concomitant]
     Route: 048
     Dates: start: 20090925
  5. SPECIAFOLDINE [Concomitant]
     Route: 048
     Dates: start: 20090925

REACTIONS (3)
  - CARDIO-RESPIRATORY ARREST [None]
  - ELECTROCARDIOGRAM QT PROLONGED [None]
  - TORSADE DE POINTES [None]
